FAERS Safety Report 18253089 (Version 1)
Quarter: 2020Q3

REPORT INFORMATION
  Report Type: Spontaneous
  Country: US (occurrence: US)
  Receive Date: 20200910
  Receipt Date: 20200910
  Transmission Date: 20201103
  Serious: Yes (Other)
  Sender: FDA-Public Use
  Company Number: US-VERTEX PHARMACEUTICALS-2020-018018

PATIENT
  Age: 7 Year
  Sex: Male

DRUGS (1)
  1. SYMDEKO [Suspect]
     Active Substance: IVACAFTOR\TEZACAFTOR
     Indication: CYSTIC FIBROSIS
     Dosage: TEZACAFTOR 50 MG/ IVACAFTOR 75 MG; IVACAFTOR 75 MG; BID
     Route: 048
     Dates: start: 202002, end: 20200902

REACTIONS (2)
  - Suicidal ideation [Unknown]
  - Anger [Unknown]

NARRATIVE: CASE EVENT DATE: 2020
